APPROVED DRUG PRODUCT: AMLODIPINE BESYLATE
Active Ingredient: AMLODIPINE BESYLATE
Strength: EQ 10MG BASE
Dosage Form/Route: TABLET;ORAL
Application: A078477 | Product #003
Applicant: AMNEAL PHARMACEUTICALS NY LLC
Approved: Jan 16, 2008 | RLD: No | RS: No | Type: DISCN